FAERS Safety Report 22183565 (Version 2)
Quarter: 2023Q2

REPORT INFORMATION
  Report Type: Spontaneous
  Country: US (occurrence: None)
  Receive Date: 20230406
  Receipt Date: 20230413
  Transmission Date: 20230722
  Serious: Yes (Other)
  Sender: FDA-Public Use
  Company Number: US-ROCHE-3326183

PATIENT
  Age: 68 Year
  Sex: Female
  Weight: 74.910 kg

DRUGS (19)
  1. OCREVUS [Suspect]
     Active Substance: OCRELIZUMAB
     Indication: Primary progressive multiple sclerosis
     Dosage: THEN 600 MG EVERY SIX MONTH
     Route: 042
     Dates: start: 2017
  2. ASPIRIN [Concomitant]
     Active Substance: ASPIRIN
     Route: 048
  3. GABAPENTIN [Concomitant]
     Active Substance: GABAPENTIN
  4. MAGNESIUM [Concomitant]
     Active Substance: MAGNESIUM
  5. METOPROLOL [Concomitant]
     Active Substance: METOPROLOL
  6. OMEPRAZOLE [Concomitant]
     Active Substance: OMEPRAZOLE
  7. SILDENAFIL [Concomitant]
     Active Substance: SILDENAFIL
  8. TYLENOL [Concomitant]
     Active Substance: ACETAMINOPHEN
     Dosage: 30 MIN PRIOR TO OCRELIZUMAB
     Route: 048
  9. PRALUENT [Concomitant]
     Active Substance: ALIROCUMAB
     Dosage: 150MG/ML
     Route: 058
  10. ALPHA LIPOIC ACID [Concomitant]
     Active Substance: .ALPHA.-LIPOIC ACID
  11. BIOTIN [Concomitant]
     Active Substance: BIOTIN
     Dosage: 300 MCG
     Route: 048
  12. CALCIUM\CHOLECALCIFEROL [Concomitant]
     Active Substance: CALCIUM\CHOLECALCIFEROL
     Dosage: 600-200 MG UNIT
     Route: 048
  13. VITAMIN B12 [Concomitant]
     Active Substance: CYANOCOBALAMIN
     Route: 048
  14. BENADRYL [Concomitant]
     Active Substance: DIPHENHYDRAMINE HYDROCHLORIDE
     Dosage: 50MG/ML ?30 MIN. PRIOR TO INFUSION
     Route: 042
  15. NEURONTIN [Concomitant]
     Active Substance: GABAPENTIN
     Route: 048
  16. LOPRESSOR [Concomitant]
     Active Substance: METOPROLOL TARTRATE
  17. PROVIGIL [Concomitant]
     Active Substance: MODAFINIL
     Route: 048
  18. MODAFINIL [Concomitant]
     Active Substance: MODAFINIL
     Indication: Fatigue
  19. VALTREX [Concomitant]
     Active Substance: VALACYCLOVIR HYDROCHLORIDE
     Route: 048

REACTIONS (1)
  - Breast cancer [Not Recovered/Not Resolved]

NARRATIVE: CASE EVENT DATE: 20230301
